FAERS Safety Report 4763187-7 (Version None)
Quarter: 2005Q3

REPORT INFORMATION
  Report Type: 
  Country: None (occurrence: None)
  Receive Date: 20050906
  Receipt Date: 20050822
  Transmission Date: 20060218
  Serious: Yes (Hospitalization)
  Sender: FDA-Public Use
  Company Number: 05-08-1470

PATIENT
  Age: 43 Year
  Sex: Male

DRUGS (7)
  1. CITALOPRAM [Suspect]
     Dosage: 250MG ORAL
     Route: 048
  2. AMLODIPINE [Suspect]
     Dosage: 10MG ORAL
     Route: 048
  3. FLUOXETINE HCL [Suspect]
     Dosage: 600MG ORAL
     Route: 048
  4. FOLIC ACID [Suspect]
  5. ASPIRIN [Suspect]
     Dosage: 7.5G
  6. PARACETAMOL [Suspect]
     Dosage: 16G
  7. PERINDOPRIL [Suspect]
     Dosage: 120MG

REACTIONS (7)
  - ALCOHOL USE [None]
  - ANURIA [None]
  - BLOOD PRESSURE DECREASED [None]
  - HAEMODYNAMIC INSTABILITY [None]
  - INTENTIONAL MISUSE [None]
  - METABOLIC ACIDOSIS [None]
  - OVERDOSE [None]
